FAERS Safety Report 12738277 (Version 1)
Quarter: 2016Q3

REPORT INFORMATION
  Report Type: Spontaneous
  Country: US (occurrence: US)
  Receive Date: 20160912
  Receipt Date: 20160912
  Transmission Date: 20161109
  Serious: No
  Sender: FDA-Public Use
  Company Number: US-SA-2016SA128628

PATIENT
  Age: 71 Year
  Sex: Female

DRUGS (8)
  1. SOLOSTAR [Concomitant]
     Active Substance: DEVICE
  2. TOUJEO [Suspect]
     Active Substance: INSULIN GLARGINE
     Indication: TYPE 2 DIABETES MELLITUS
     Dosage: 15UNITS AM AND 10 UNITS PM
     Route: 065
  3. PREDNISONE. [Concomitant]
     Active Substance: PREDNISONE
  4. AZATHIOPRINE. [Concomitant]
     Active Substance: AZATHIOPRINE
  5. NOVOLOG [Concomitant]
     Active Substance: INSULIN ASPART
  6. HUMALOG [Concomitant]
     Active Substance: INSULIN LISPRO
  7. SIMVASTATIN. [Concomitant]
     Active Substance: SIMVASTATIN
  8. LANTUS [Concomitant]
     Active Substance: INSULIN GLARGINE
     Dates: start: 2009

REACTIONS (11)
  - Condition aggravated [Unknown]
  - Off label use [Unknown]
  - Hypoaesthesia [Unknown]
  - Renal disorder [Unknown]
  - Unevaluable event [Unknown]
  - Hyperglycaemia [Unknown]
  - Weight increased [Unknown]
  - Dizziness [Unknown]
  - Thyroid disorder [Unknown]
  - Nausea [Unknown]
  - Neuropathy peripheral [Unknown]
